FAERS Safety Report 6490716-8 (Version None)
Quarter: 2009Q4

REPORT INFORMATION
  Report Type: 
  Country: None (occurrence: None)
  Receive Date: 20091211
  Receipt Date: 20091202
  Transmission Date: 20100525
  Serious: Yes (Life-Threatening, Hospitalization, Other)
  Sender: FDA-Public Use
  Company Number: B0606728A

PATIENT
  Sex: Male
  Weight: 4.3 kg

DRUGS (7)
  1. LANOXIN [Suspect]
     Indication: ATRIAL FLUTTER
     Dosage: 180MCG FOUR TIMES PER DAY
     Route: 048
     Dates: start: 20091030, end: 20091101
  2. NUTRAMIGEN [Concomitant]
  3. LOSEC [Concomitant]
     Dosage: 4MG TWICE PER DAY
  4. MOTILIUM [Concomitant]
  5. PERFUSION [Concomitant]
     Dosage: 15ML SEE DOSAGE TEXT
  6. NUTRAMIGEN [Concomitant]
  7. NEOBACITRACINE [Concomitant]
     Dosage: 2DROP THREE TIMES PER DAY

REACTIONS (2)
  - ACCIDENTAL OVERDOSE [None]
  - BRADYCARDIA [None]
